FAERS Safety Report 24869438 (Version 2)
Quarter: 2025Q1

REPORT INFORMATION
  Report Type: Spontaneous
  Country: US (occurrence: US)
  Receive Date: 20250121
  Receipt Date: 20250121
  Transmission Date: 20250408
  Serious: Yes (Death, Hospitalization)
  Sender: PFIZER
  Company Number: US-PFIZER INC-202500012835

PATIENT
  Age: 44 Year
  Sex: Male

DRUGS (14)
  1. FENTANYL CITRATE [Suspect]
     Active Substance: FENTANYL CITRATE
     Route: 051
  2. BUPRENORPHINE [Suspect]
     Active Substance: BUPRENORPHINE
     Route: 051
  3. LEVETIRACETAM [Suspect]
     Active Substance: LEVETIRACETAM
     Route: 051
  4. FENTANYL CITRATE [Suspect]
     Active Substance: FENTANYL CITRATE
     Route: 048
  5. COCAINE [Suspect]
     Active Substance: COCAINE
     Route: 051
  6. COCAINE [Suspect]
     Active Substance: COCAINE
     Route: 048
  7. XYLAZINE [Suspect]
     Active Substance: XYLAZINE
     Route: 051
  8. XYLAZINE [Suspect]
     Active Substance: XYLAZINE
     Route: 048
  9. CLONAZEPAM [Suspect]
     Active Substance: CLONAZEPAM
     Route: 051
  10. CLONAZEPAM [Suspect]
     Active Substance: CLONAZEPAM
     Route: 048
  11. BUPRENORPHINE [Suspect]
     Active Substance: BUPRENORPHINE
     Route: 048
  12. LEVETIRACETAM [Suspect]
     Active Substance: LEVETIRACETAM
     Route: 048
  13. CANNABIS SATIVA SUBSP. INDICA TOP [Suspect]
     Active Substance: CANNABIS SATIVA SUBSP. INDICA TOP
     Route: 051
  14. CANNABIS SATIVA SUBSP. INDICA TOP [Suspect]
     Active Substance: CANNABIS SATIVA SUBSP. INDICA TOP
     Route: 048

REACTIONS (3)
  - Drug abuse [Fatal]
  - Cardiac arrest [Fatal]
  - Respiratory arrest [Fatal]

NARRATIVE: CASE EVENT DATE: 20230101
